FAERS Safety Report 18153253 (Version 1)
Quarter: 2020Q3

REPORT INFORMATION
  Report Type: Spontaneous
  Country: US (occurrence: US)
  Receive Date: 20200815
  Receipt Date: 20200815
  Transmission Date: 20201103
  Serious: Yes (Other)
  Sender: FDA-Public Use
  Company Number: US-SERVIER-S20007696

PATIENT

DRUGS (8)
  1. TN UNSEPCIFIED [Concomitant]
     Dosage: 500 MG/M2 D1?D4, D8?D11, D29?D32, D36?D39
  2. TYLENOL [Concomitant]
     Active Substance: ACETAMINOPHEN
     Indication: PROPHYLAXIS
     Route: 065
  3. TN UNSEPCIFIED [Concomitant]
     Dosage: 15 MG/M2, 1X/WEEK
     Route: 042
  4. TN UNSEPCIFIED [Concomitant]
     Dosage: 1000 MG/M2  D1 D29
  5. ONCASPAR [Suspect]
     Active Substance: PEGASPARGASE
     Indication: PRODUCT USED FOR UNKNOWN INDICATION
     Dosage: 2500 IU/M2  D15, D46
     Route: 042
     Dates: start: 2020, end: 2020
  6. TN UNSPECIFIED [Concomitant]
     Indication: PROPHYLAXIS
     Route: 065
  7. DIPHENHYDRAMINE. [Concomitant]
     Active Substance: DIPHENHYDRAMINE
     Indication: PROPHYLAXIS
     Route: 065
  8. TN UNSEPCIFIED [Concomitant]
     Dosage: 60 MG/M2 D1?14 AND D29?42

REACTIONS (1)
  - Hypersensitivity [Recovered/Resolved]

NARRATIVE: CASE EVENT DATE: 2020
